FAERS Safety Report 10580297 (Version 1)
Quarter: 2014Q4

REPORT INFORMATION
  Report Type: Report from Study
  Country: BR (occurrence: BR)
  Receive Date: 20141112
  Receipt Date: 20141112
  Transmission Date: 20150529
  Serious: Yes (Death)
  Sender: FDA-Public Use
  Company Number: ALCN2014BR006334

PATIENT
  Sex: Male
  Weight: 75 kg

DRUGS (3)
  1. AMILORIDE [Concomitant]
     Active Substance: AMILORIDE
     Indication: HYPERTENSION
     Dosage: 1 UNK, UNK
     Route: 048
  2. TRAVATAN [Suspect]
     Active Substance: TRAVOPROST
     Indication: GLAUCOMA
     Dosage: 1 GTT, QHS
     Route: 047
  3. CEPHALEXIN. [Concomitant]
     Active Substance: CEPHALEXIN
     Indication: HYPERTENSION
     Dosage: 1 UNK, UNK
     Route: 048

REACTIONS (1)
  - Cerebrovascular accident [Fatal]
